FAERS Safety Report 6002557 (Version 3)
Quarter: 2013Q3

REPORT INFORMATION
  Report Type: Spontaneous
  Country: US (occurrence: None)
  Receive Date: 20060228
  Receipt Date: 20130814
  Transmission Date: 20140515
  Serious: Yes (Death, Hospitalization)
  Sender: FDA-Public Use
  Company Number: 222515

PATIENT
  Age: 56 Year
  Sex: Female
  Weight: 48 kg

DRUGS (11)
  1. INNOHEP [Suspect]
     Indication: DEEP VEIN THROMBOSIS
     Route: 058
     Dates: start: 20130322, end: 20130710
  2. INNOHEP [Suspect]
     Indication: PULMONARY EMBOLISM
     Route: 058
     Dates: start: 20130322, end: 20130710
  3. PARACETAMOL (PARACETAMOL) [Suspect]
     Indication: PERIORBITAL CELLULITIS
     Route: 048
     Dates: start: 20130627
  4. CLINDAMYCIN (CLINDAMYCIN) [Suspect]
     Indication: PNEUMONIA
     Dosage: 2700 MG (900 MG, 1 IN 8 HR), INTRAVENOUS
     Dates: start: 20130711
  5. AUGMENTIN (AUGMENTIN /00756801/) [Concomitant]
  6. FOLIC ACID (FOLIC ACID) [Concomitant]
  7. HYDROXYUREA (HYDROXYCARBAMIDE) [Concomitant]
  8. CHLORPHENIRAMINE (CHLORPHENAMINE) [Concomitant]
  9. LASIX (FUROSEMIDE) [Concomitant]
  10. ELIXIR KCL (POTASSIUM CHLORIDE) [Concomitant]
  11. MAGNESIUM SULPHATE [Concomitant]

REACTIONS (5)
  - Nasal septum perforation [None]
  - Scab [None]
  - Mucosal dryness [None]
  - Epistaxis [None]
  - Erythema [None]
